FAERS Safety Report 9928380 (Version 1)
Quarter: 2014Q1

REPORT INFORMATION
  Report Type: Spontaneous
  Country: GB (occurrence: GB)
  Receive Date: 20140227
  Receipt Date: 20140227
  Transmission Date: 20141002
  Serious: Yes (Other)
  Sender: FDA-Public Use
  Company Number: GB-PFIZER INC-2014051995

PATIENT
  Age: 76 Year
  Sex: Female
  Weight: 71 kg

DRUGS (19)
  1. TOLTERODINE TARTRATE [Suspect]
     Dosage: UNK
  2. ALENDRONIC ACID [Concomitant]
     Dosage: UNK
     Dates: start: 20131209, end: 20140106
  3. ALENDRONIC ACID [Concomitant]
     Dates: start: 20140122
  4. CLENIL [Concomitant]
     Dosage: UNK
     Dates: start: 20140122
  5. CLENIL [Concomitant]
     Dates: start: 20131106, end: 20131226
  6. CO-CODAMOL [Concomitant]
     Dosage: UNK
     Dates: start: 20131216, end: 20140113
  7. IBUPROFEN [Concomitant]
     Dosage: UNK
     Dates: start: 20131216, end: 20131226
  8. LEVOTHYROXINE [Concomitant]
     Dosage: UNK
     Dates: start: 20140122
  9. LEVOTHYROXINE [Concomitant]
     Dates: start: 20131209, end: 20140106
  10. MELOXICAM [Concomitant]
     Dosage: UNK
     Dates: start: 20131028, end: 20131125
  11. MELOXICAM [Concomitant]
     Dates: start: 20140122
  12. MELOXICAM [Concomitant]
     Dates: start: 20131209, end: 20140106
  13. PARACETAMOL [Concomitant]
     Dosage: UNK
     Dates: start: 20131209, end: 20131211
  14. PARACETAMOL [Concomitant]
     Dates: start: 20140122, end: 20140124
  15. PREDNISOLONE [Concomitant]
     Dosage: UNK
     Dates: start: 20140122, end: 20140201
  16. PREGABALIN [Concomitant]
     Dosage: UNK
     Dates: start: 20131028
  17. SIMVASTATIN [Concomitant]
     Dosage: UNK
     Dates: start: 20140122
  18. SIMVASTATIN [Concomitant]
     Dates: start: 20131209, end: 20140106
  19. TRAMADOL [Concomitant]
     Dosage: UNK
     Dates: start: 20140107, end: 20140129

REACTIONS (2)
  - Pruritus generalised [Recovered/Resolved]
  - Eyelid oedema [Recovered/Resolved]
